FAERS Safety Report 7429563-9 (Version None)
Quarter: 2011Q2

REPORT INFORMATION
  Report Type: 
  Country: None (occurrence: None)
  Receive Date: 20110421
  Receipt Date: 20110415
  Transmission Date: 20111010
  Serious: Yes (Other)
  Sender: FDA-Public Use
  Company Number: A0920785A

PATIENT
  Sex: Male
  Weight: 54 kg

DRUGS (3)
  1. RADIOTHERAPY [Concomitant]
     Route: 061
     Dates: start: 20090919
  2. LAPATINIB [Suspect]
     Dosage: 1500MG PER DAY
     Route: 048
     Dates: start: 20090912
  3. CISPLATIN [Suspect]
     Route: 042
     Dates: start: 20090919

REACTIONS (1)
  - LYMPHOPENIA [None]
